FAERS Safety Report 14078322 (Version 1)
Quarter: 2017Q4

REPORT INFORMATION
  Report Type: Spontaneous
  Country: US (occurrence: None)
  Receive Date: 20171012
  Receipt Date: 20171012
  Transmission Date: 20180321
  Serious: No
  Sender: FDA-Public Use
  Company Number: None

PATIENT

DRUGS (2)
  1. CARBIDOPA AND LEVODOPA [Suspect]
     Active Substance: CARBIDOPA\LEVODOPA
     Route: 048
  2. CARBIDOPA AND LEVODOPA EXTENDED RELEASE [Suspect]
     Active Substance: CARBIDOPA\LEVODOPA
     Dosage: TABLET, EXTENDED RELEASE
     Route: 048

REACTIONS (3)
  - Incorrect drug dosage form administered [None]
  - Transcription medication error [None]
  - Drug dispensing error [None]
